FAERS Safety Report 15007378 (Version 4)
Quarter: 2018Q2

REPORT INFORMATION
  Report Type: Report from Study
  Country: JP (occurrence: JP)
  Receive Date: 20180613
  Receipt Date: 20180625
  Transmission Date: 20180711
  Serious: Yes (Hospitalization)
  Sender: FDA-Public Use
  Company Number: JP-009507513-1806JPN004466

PATIENT
  Age: 55 Year
  Sex: Female
  Weight: 60 kg

DRUGS (23)
  1. TRICOR [Concomitant]
     Active Substance: FENOFIBRATE
     Indication: HYPERLIPIDAEMIA
     Dosage: 80 MG, QD
     Route: 048
     Dates: start: 20171003
  2. GEMCITABINE [Suspect]
     Active Substance: GEMCITABINE\GEMCITABINE HYDROCHLORIDE
     Dosage: 1000 MG/M2, ON DAY 1 AND 8 EVERY 21 DAYS
     Route: 042
     Dates: start: 20180501, end: 20180501
  3. CALBLOCK [Concomitant]
     Active Substance: AZELNIDIPINE
     Indication: HYPERTENSION
     Dosage: 16 MG, QD
     Route: 048
     Dates: start: 20170912
  4. CALONAL [Concomitant]
     Active Substance: ACETAMINOPHEN
     Indication: HEADACHE
     Dosage: TOTAL DAILY DOSE: 400 MG, PRN
     Route: 048
     Dates: start: 20180419
  5. BLINDED PEMBROLIZUMAB [Suspect]
     Active Substance: PEMBROLIZUMAB
     Dosage: UNK
     Route: 042
     Dates: start: 20180424, end: 20180424
  6. CARBOPLATIN. [Suspect]
     Active Substance: CARBOPLATIN
     Dosage: AUC 2, ON DAY 1 AND 8 EVERY 21 DAYS
     Route: 042
     Dates: start: 20171107, end: 20171107
  7. SEIBULE [Concomitant]
     Active Substance: MIGLITOL
     Indication: DIABETES MELLITUS
     Dosage: 150 MG, QD
     Route: 048
     Dates: start: 20160314
  8. ARTIST [Concomitant]
     Active Substance: CARVEDILOL
     Indication: HYPERTENSION
     Dosage: 5 MG, ONCE
     Route: 048
     Dates: start: 20171107
  9. GRANISETRON HYDROCHLORIDE. [Concomitant]
     Active Substance: GRANISETRON HYDROCHLORIDE
     Indication: PREMEDICATION
     Dosage: 3 MG, ONCE
     Route: 042
     Dates: start: 20180501, end: 20180501
  10. BETAMETHASONE. [Suspect]
     Active Substance: BETAMETHASONE
     Indication: BRAIN OEDEMA
     Dosage: 1 MG, QD
     Route: 048
     Dates: start: 20180531
  11. AZILVA [Concomitant]
     Active Substance: AZILSARTAN KAMEDOXOMIL
     Indication: HYPERTENSION
     Dosage: 40 MG, ONCE
     Route: 048
     Dates: start: 20160228
  12. FEBURIC [Concomitant]
     Active Substance: FEBUXOSTAT
     Indication: HYPERLIPIDAEMIA
     Dosage: 20 MG, ONCE
     Route: 048
     Dates: start: 20150617
  13. EQUA [Concomitant]
     Active Substance: VILDAGLIPTIN
     Indication: DIABETES MELLITUS
     Dosage: 50 MG, ONCE
     Route: 048
     Dates: start: 20161011
  14. ZETIA [Concomitant]
     Active Substance: EZETIMIBE
     Indication: HYPERLIPIDAEMIA
     Dosage: 10 MG, ONCE
     Route: 048
     Dates: start: 20160809
  15. GEMCITABINE [Suspect]
     Active Substance: GEMCITABINE\GEMCITABINE HYDROCHLORIDE
     Indication: TRIPLE NEGATIVE BREAST CANCER
     Dosage: 1000 MG/M2, ON DAY 1 AND 8 EVERY 21 DAYS
     Route: 042
     Dates: start: 20170228, end: 20180424
  16. CARBOPLATIN. [Suspect]
     Active Substance: CARBOPLATIN
     Indication: TRIPLE NEGATIVE BREAST CANCER
     Dosage: AUC 2, ON DAY 1 AND 8 EVERY 21 DAYS
     Route: 042
     Dates: start: 20170228, end: 20171017
  17. OXINORM (OXYCODONE HYDROCHLORIDE) [Concomitant]
     Active Substance: OXYCODONE HYDROCHLORIDE
     Indication: CANCER PAIN
     Dosage: TOTAL DAILY DOSE: 2.5 MG, PRN, FORMULATION: CAPLET
     Route: 048
     Dates: start: 20170221
  18. TAKECAB [Concomitant]
     Active Substance: VONOPRAZAN FUMURATE
     Indication: GASTRITIS PROPHYLAXIS
     Dosage: 10 MG, QD
     Route: 048
     Dates: start: 20180502
  19. BLINDED PEMBROLIZUMAB [Suspect]
     Active Substance: PEMBROLIZUMAB
     Indication: TRIPLE NEGATIVE BREAST CANCER
     Dosage: UNK
     Route: 042
     Dates: start: 20170228, end: 20180403
  20. BLINDED PEMBROLIZUMAB [Suspect]
     Active Substance: PEMBROLIZUMAB
     Dosage: UNK
     Route: 042
     Dates: start: 20180522
  21. GEMCITABINE [Suspect]
     Active Substance: GEMCITABINE\GEMCITABINE HYDROCHLORIDE
     Dosage: 1000 MG/M2, ON DAY 1 AND 8 EVERY 21 DAYS
     Route: 042
     Dates: start: 20180522
  22. TRESIBA [Concomitant]
     Active Substance: INSULIN DEGLUDEC
     Indication: DIABETES MELLITUS
     Dosage: 12 IU, ONCE
     Route: 030
     Dates: start: 20160302, end: 20180515
  23. BETAMETHASONE. [Concomitant]
     Active Substance: BETAMETHASONE
     Indication: BRAIN OEDEMA
     Dosage: 2 MG, QD
     Route: 048
     Dates: start: 20180502, end: 20180530

REACTIONS (1)
  - Diabetes mellitus [Recovering/Resolving]

NARRATIVE: CASE EVENT DATE: 20180515
